FAERS Safety Report 7694498-3 (Version None)
Quarter: 2011Q3

REPORT INFORMATION
  Report Type: 
  Country: None (occurrence: None)
  Receive Date: 20110819
  Receipt Date: 20110810
  Transmission Date: 20111222
  Serious: Yes (Other)
  Sender: FDA-Public Use
  Company Number: PHHY2011AU72368

PATIENT
  Sex: Female

DRUGS (1)
  1. SANDOSTATIN LAR [Suspect]
     Indication: CARCINOID SYNDROME
     Dosage: 30 MG, UNK
     Route: 030
     Dates: start: 20101001

REACTIONS (4)
  - INJECTION SITE HAEMATOMA [None]
  - PAIN [None]
  - INJECTION SITE DISCOMFORT [None]
  - INJECTION SITE MASS [None]
